FAERS Safety Report 5566670-X (Version None)
Quarter: 2007Q4

REPORT INFORMATION
  Report Type: 
  Country: None (occurrence: None)
  Receive Date: 20071219
  Receipt Date: 20071212
  Transmission Date: 20080405
  Serious: Yes (Other)
  Sender: FDA-Public Use
  Company Number: GB-ROCHE-475192

PATIENT
  Age: 25 Year
  Sex: Female
  Weight: 82 kg

DRUGS (2)
  1. ROACCUTANE [Suspect]
     Indication: ACNE
     Dosage: DOSAGE REGIMEN REPORTED AS DAILY.
     Route: 048
     Dates: start: 20060620, end: 20061128
  2. MICROGYNON [Concomitant]
     Indication: CONTRACEPTION
     Dosage: STRENGTH AND FORMULATION REPORTED AS T OD.
     Route: 048
     Dates: start: 20060620, end: 20061002

REACTIONS (2)
  - NO ADVERSE REACTION [None]
  - PREGNANCY [None]
